FAERS Safety Report 21669146 (Version 1)
Quarter: 2022Q4

REPORT INFORMATION
  Report Type: Spontaneous
  Country: DE (occurrence: None)
  Receive Date: 20221201
  Receipt Date: 20221201
  Transmission Date: 20230112
  Serious: Yes (Other)
  Sender: FDA-Public Use
  Company Number: 2022A388619

PATIENT
  Age: 80 Year
  Sex: Male

DRUGS (2)
  1. DAPAGLIFLOZIN [Suspect]
     Active Substance: DAPAGLIFLOZIN
     Dosage: 10.0MG UNKNOWN
     Route: 048
  2. FERINJECT [Concomitant]
     Active Substance: FERRIC CARBOXYMALTOSE

REACTIONS (3)
  - Renal failure [Recovering/Resolving]
  - Iron deficiency anaemia [Recovering/Resolving]
  - Cardiac failure [Unknown]
